FAERS Safety Report 14966967 (Version 4)
Quarter: 2019Q1

REPORT INFORMATION
  Report Type: Report from Study
  Country: NL (occurrence: NL)
  Receive Date: 20180604
  Receipt Date: 20190322
  Transmission Date: 20190417
  Serious: Yes (Hospitalization, Other)
  Sender: FDA-Public Use
  Company Number: NL-BIOGEN-2018BI00587948

PATIENT
  Age: 46 Year
  Sex: Male

DRUGS (5)
  1. MOVICOLON [Concomitant]
     Active Substance: POLYETHYLENE GLYCOL 3350\POTASSIUM CHLORIDE\SODIUM BICARBONATE\SODIUM CHLORIDE
     Indication: LAXATIVE SUPPORTIVE CARE
     Dosage: 1 SACHET
     Route: 050
     Dates: start: 201805
  2. COLECALCIFERON [Concomitant]
     Indication: VITAMIN SUPPLEMENTATION
     Dosage: 25000 IE
     Route: 050
     Dates: start: 20150522
  3. TYSABRI [Suspect]
     Active Substance: NATALIZUMAB
     Indication: MULTIPLE SCLEROSIS
     Route: 050
     Dates: start: 20100304, end: 20181227
  4. TOLTERODINE [Concomitant]
     Active Substance: TOLTERODINE
     Indication: BLADDER SPASM
     Route: 050
     Dates: start: 20150522
  5. DALTEPARINE [Concomitant]
     Indication: THROMBOSIS PROPHYLAXIS
     Dosage: 2500 IE
     Route: 050
     Dates: start: 20160811

REACTIONS (3)
  - Cystitis [Unknown]
  - Device occlusion [Unknown]
  - Urosepsis [Recovered/Resolved]

NARRATIVE: CASE EVENT DATE: 20180524
